FAERS Safety Report 10177065 (Version 2)
Quarter: 2014Q2

REPORT INFORMATION
  Report Type: Report from Study
  Country: CA (occurrence: CA)
  Receive Date: 20140516
  Receipt Date: 20140516
  Transmission Date: 20141212
  Serious: Yes (Other)
  Sender: FDA-Public Use
  Company Number: CA-ASTRAZENECA-2014SE26948

PATIENT
  Age: 64 Year
  Sex: Male

DRUGS (13)
  1. CAPRELSA [Suspect]
     Indication: MEDULLARY THYROID CANCER
     Route: 048
     Dates: start: 20140318, end: 20140415
  2. ROBITUSSIN [Concomitant]
     Dosage: 100MG/10 MG/7.5 MG/5 ML TID
     Route: 048
  3. AZITHROMYCIN [Concomitant]
     Route: 048
  4. ASCENSIA CONTOUR [Concomitant]
     Dosage: PRN
  5. ZOPICLONE [Concomitant]
     Route: 048
  6. JANUMET [Concomitant]
     Dosage: 50MG/1000MG
  7. DDAMIRON [Concomitant]
     Route: 048
  8. ATORVASTATIN [Concomitant]
     Route: 048
  9. CILAZAPRIL [Concomitant]
     Route: 048
  10. TAMSULOSIN [Concomitant]
     Route: 048
  11. ROCALTROL [Concomitant]
     Route: 048
  12. AMLODIPINE [Concomitant]
     Route: 048
  13. ELTROXIN [Concomitant]
     Route: 048

REACTIONS (5)
  - Hypoaesthesia [Not Recovered/Not Resolved]
  - Blood pressure increased [Not Recovered/Not Resolved]
  - Cerebrovascular accident [Not Recovered/Not Resolved]
  - Blood creatinine increased [Unknown]
  - Renal disorder [Not Recovered/Not Resolved]
